FAERS Safety Report 9605710 (Version 1)
Quarter: 2013Q4

REPORT INFORMATION
  Report Type: Spontaneous
  Country: FR (occurrence: FR)
  Receive Date: 20131008
  Receipt Date: 20131008
  Transmission Date: 20140711
  Serious: Yes (Hospitalization)
  Sender: FDA-Public Use
  Company Number: PHHY2013FR110573

PATIENT
  Age: 78 Year
  Sex: Female

DRUGS (7)
  1. ESIDREX [Suspect]
     Dosage: 2.5 MG, QD
     Route: 048
     Dates: end: 20130624
  2. CIPROFLOXACINE [Suspect]
     Dosage: 750 MG, BID
     Route: 048
     Dates: start: 20130620, end: 20130624
  3. RAMIPRIL [Suspect]
     Dosage: 2.5 MG, BID
     Route: 048
  4. RAMIPRIL [Suspect]
     Dosage: 1.25 MG, QD
     Route: 048
  5. TAHOR [Concomitant]
     Dosage: 20 MG, UNK
  6. TEMESTA [Concomitant]
     Dosage: 1 MG, UNK
  7. LOVENOX [Concomitant]

REACTIONS (2)
  - Blood creatinine increased [Recovered/Resolved]
  - Glomerular filtration rate decreased [Recovered/Resolved]
